FAERS Safety Report 14833790 (Version 1)
Quarter: 2018Q2

REPORT INFORMATION
  Report Type: Spontaneous
  Country: US (occurrence: US)
  Receive Date: 20180501
  Receipt Date: 20180501
  Transmission Date: 20180711
  Serious: No
  Sender: FDA-Public Use
  Company Number: US-ROCHE-1931237

PATIENT
  Age: 32 Year
  Sex: Female

DRUGS (3)
  1. AVASTIN [Suspect]
     Active Substance: BEVACIZUMAB
     Indication: CERVIX CARCINOMA
     Dosage: 6 CYCLES
     Route: 065
     Dates: start: 201601
  2. CARBOPLATIN. [Concomitant]
     Active Substance: CARBOPLATIN
     Route: 065
     Dates: start: 201601
  3. TAXOL [Concomitant]
     Active Substance: PACLITAXEL
     Route: 065
     Dates: start: 201601

REACTIONS (3)
  - Recurrent cancer [Unknown]
  - Metastases to abdominal cavity [Unknown]
  - Metastases to lung [Unknown]

NARRATIVE: CASE EVENT DATE: 201703
